FAERS Safety Report 23764688 (Version 1)
Quarter: 2024Q2

REPORT INFORMATION
  Report Type: Spontaneous
  Country: RO (occurrence: RO)
  Receive Date: 20240420
  Receipt Date: 20240420
  Transmission Date: 20240716
  Serious: Yes (Hospitalization, Other)
  Sender: FDA-Public Use
  Company Number: RO-TEVA-VS-3184004

PATIENT
  Sex: Female

DRUGS (1)
  1. COPAXONE [Suspect]
     Active Substance: GLATIRAMER ACETATE
     Indication: Relapsing-remitting multiple sclerosis
     Dosage: DOSAGE: 40 MG/ML
     Route: 065
     Dates: start: 2017

REACTIONS (10)
  - Mixed anxiety and depressive disorder [Unknown]
  - Fatigue [Unknown]
  - Dysphagia [Unknown]
  - Asthenia [Unknown]
  - Fall [Unknown]
  - Anaemia [Unknown]
  - Stillbirth [Unknown]
  - Vertigo [Unknown]
  - Headache [Unknown]
  - Multiple sclerosis [Unknown]

NARRATIVE: CASE EVENT DATE: 20200101
